FAERS Safety Report 8463512-X (Version None)
Quarter: 2012Q2

REPORT INFORMATION
  Report Type: 
  Country: None (occurrence: None)
  Receive Date: 20120323
  Receipt Date: 20110926
  Transmission Date: 20120825
  Serious: Yes (Other)
  Sender: FDA-Public Use
  Company Number: 163-21880-11093202

PATIENT
  Age: 60 Year
  Sex: Female
  Weight: 109.7705 kg

DRUGS (1)
  1. REVLIMID [Suspect]
     Indication: MYELODYSPLASTIC SYNDROME
     Dosage: 10 MG, 1 IN 1 D, PO
     Route: 048
     Dates: start: 20110201

REACTIONS (2)
  - RENAL FAILURE [None]
  - NO THERAPEUTIC RESPONSE [None]
